FAERS Safety Report 9953701 (Version 2)
Quarter: 2014Q1

REPORT INFORMATION
  Report Type: Spontaneous
  Country: MX (occurrence: MX)
  Receive Date: 20140304
  Receipt Date: 20140304
  Transmission Date: 20141002
  Serious: Yes (Disabling, Other)
  Sender: FDA-Public Use
  Company Number: PHHY2010MX07107

PATIENT
  Age: 82 Year
  Sex: Female

DRUGS (1)
  1. ACLASTA [Suspect]
     Indication: OSTEOPOROSIS
     Dosage: 1 INJECTION (5 MG/ 100 ML) ANNUALLY
     Route: 042
     Dates: start: 2010

REACTIONS (4)
  - Gait disturbance [Recovering/Resolving]
  - Fractured coccyx [Recovering/Resolving]
  - Fall [Recovered/Resolved]
  - Pain in extremity [Not Recovered/Not Resolved]
